FAERS Safety Report 6152477-1 (Version None)
Quarter: 2009Q2

REPORT INFORMATION
  Report Type: 
  Country: None (occurrence: None)
  Receive Date: 20090413
  Receipt Date: 20090402
  Transmission Date: 20091009
  Serious: Yes (Hospitalization, Other)
  Sender: FDA-Public Use
  Company Number: PHHY2009FR12651

PATIENT
  Sex: Male

DRUGS (12)
  1. TEGRETOL [Suspect]
     Dosage: 100 MG, QD
     Route: 048
     Dates: start: 20080912
  2. TEGRETOL [Suspect]
     Dosage: UNK
     Route: 048
  3. ATARAX [Suspect]
     Dosage: 25 MG, BID
     Route: 048
     Dates: start: 20080912
  4. EBIXA [Suspect]
     Indication: ABNORMAL BEHAVIOUR
     Dosage: 20 MG, QD
     Route: 048
     Dates: start: 20080923
  5. LOXAPAC [Suspect]
     Indication: ABNORMAL BEHAVIOUR
     Dosage: 14 DROPS/DAY
     Route: 048
     Dates: start: 20080923
  6. LOXAPAC [Suspect]
     Dosage: UNK
     Route: 048
  7. ISOPTIN [Concomitant]
     Dosage: 240 MG, QD
     Route: 048
     Dates: start: 20070101
  8. KARDEGIC [Concomitant]
     Dosage: 160 MG, QD
     Dates: start: 20070101
  9. MICARDIS HCT [Concomitant]
     Dosage: 1 DF, QD
     Dates: start: 20070101
  10. TAHOR [Concomitant]
     Dosage: 10 MG, QD
     Dates: start: 20070101
  11. TANAKAN [Concomitant]
     Dosage: 3 DF/DAY
     Dates: start: 20070101
  12. XANAX [Concomitant]
     Dosage: 0.125 MG/DAY
     Dates: start: 20070101

REACTIONS (4)
  - APATHY [None]
  - CLONIC CONVULSION [None]
  - HEMIPLEGIA [None]
  - PUPILS UNEQUAL [None]
